FAERS Safety Report 8837772 (Version 1)
Quarter: 2012Q4

REPORT INFORMATION
  Report Type: Report from Study
  Country: JP (occurrence: JP)
  Receive Date: 20121012
  Receipt Date: 20121012
  Transmission Date: 20130627
  Serious: Yes (Hospitalization)
  Sender: FDA-Public Use
  Company Number: JP-009507513-2012SP028315

PATIENT
  Age: 66 Year
  Sex: Male
  Weight: 76 kg

DRUGS (16)
  1. PEGINTRON [Suspect]
     Indication: HEPATITIS C
     Dosage: 1.5 Microgram per kilogram, qw
     Route: 058
     Dates: start: 20120322
  2. REBETOL [Suspect]
     Indication: HEPATITIS C
     Dosage: 400 mg, UNK
     Route: 048
     Dates: start: 20120426, end: 20120511
  3. REBETOL [Suspect]
     Dosage: 800 mg, UNK
     Route: 048
     Dates: start: 20120322, end: 20120418
  4. REBETOL [Suspect]
     Dosage: 600 mg, UNK
     Route: 048
     Dates: start: 20120419, end: 20120425
  5. REBETOL [Suspect]
     Dosage: 200 mg, qd
     Route: 048
     Dates: start: 20120517
  6. TELAVIC [Suspect]
     Indication: HEPATITIS C
     Dosage: 2250mg
     Route: 048
     Dates: start: 20120322, end: 20120510
  7. TELAVIC [Suspect]
     Dosage: 2250 mg,
     Route: 048
     Dates: start: 20120517
  8. URSO [Concomitant]
     Indication: HEPATITIS C
     Dosage: 600 mg, UNK
     Route: 048
     Dates: end: 20120510
  9. TAKEPRON [Concomitant]
     Indication: GASTROOESOPHAGEAL REFLUX DISEASE
     Dosage: 15 mg, qd
     Route: 048
  10. ZYLORIC [Concomitant]
     Indication: HYPERURICAEMIA
     Dosage: 100 mg, qd
     Route: 048
  11. NORVASC [Concomitant]
     Indication: HYPERTENSION
     Dosage: 5 mg, qd
     Route: 048
  12. TALION (BEPOTASTINE BESYLATE) [Concomitant]
     Dosage: UPDATE (01JUN2012): TALION OD
     Route: 065
     Dates: start: 20120426
  13. ANTEBATE [Concomitant]
     Dosage: UPDATE (01JUN2012)
     Route: 065
     Dates: start: 20120426
  14. HIRUDOID SOFT [Concomitant]
     Dosage: UPDATE (01JUN2012)
     Route: 065
     Dates: start: 20120426
  15. ASIAN GINSENG (+) ASTRAGALUS (+) BUPLEURUM (+) CANG ZHU ATRACTYLODES ( [Concomitant]
     Indication: MALAISE
     Dosage: UPDATE (01JUN2012), UPDATE (08JUN2012)
     Route: 065
     Dates: start: 20120426
  16. AMINO ACIDS (UNSPECIFIED) [Concomitant]
     Dosage: UPDATE (08JUN2012): DOSE IS UNCERTAIN IN A DAY
     Route: 042

REACTIONS (2)
  - Gastritis [Recovering/Resolving]
  - Decreased appetite [Recovering/Resolving]
